FAERS Safety Report 9462569 (Version 3)
Quarter: 2013Q4

REPORT INFORMATION
  Report Type: Spontaneous
  Country: ES (occurrence: ES)
  Receive Date: 20130816
  Receipt Date: 20131002
  Transmission Date: 20140711
  Serious: Yes (Other)
  Sender: FDA-Public Use
  Company Number: ES-BRISTOL-MYERS SQUIBB COMPANY-19192988

PATIENT
  Age: 68 Year
  Sex: Male
  Weight: 80 kg

DRUGS (3)
  1. ERBITUX SOLN FOR INF 5MG/ML [Suspect]
     Indication: COLON CANCER METASTATIC
     Dosage: BIWEEKLY TREATMENT
     Route: 042
     Dates: start: 20090326, end: 20130411
  2. XELODA [Concomitant]
     Indication: COLON CANCER METASTATIC
     Route: 048
     Dates: start: 200902
  3. OXALIPLATIN [Concomitant]
     Indication: COLON CANCER METASTATIC
     Route: 042
     Dates: start: 200902

REACTIONS (3)
  - Pneumatosis intestinalis [Recovered/Resolved]
  - Pneumoperitoneum [Recovered/Resolved]
  - Toxicity to various agents [Unknown]
